FAERS Safety Report 10737387 (Version 1)
Quarter: 2015Q1

REPORT INFORMATION
  Report Type: Other
  Country: US (occurrence: US)
  Receive Date: 20150126
  Receipt Date: 20150126
  Transmission Date: 20150721
  Serious: Yes (Death)
  Sender: FDA-Public Use
  Company Number: US-LEHIGH_VALLEY-USA-POI0580201500027

PATIENT
  Age: 48 Year
  Sex: Female

DRUGS (13)
  1. CLONIDINE. [Suspect]
     Active Substance: CLONIDINE
     Dates: end: 2013
  2. METHYLPREDNISOLONE. [Suspect]
     Active Substance: METHYLPREDNISOLONE
     Dates: end: 2013
  3. OXYCODONE HCL CAPSULES [Suspect]
     Active Substance: OXYCODONE HYDROCHLORIDE
     Dates: end: 2013
  4. LISINOPRIL. [Suspect]
     Active Substance: LISINOPRIL
     Dates: end: 2013
  5. CEPHALEXIN. [Suspect]
     Active Substance: CEPHALEXIN
     Dates: end: 2013
  6. CYCLOBENZAPRINE [Suspect]
     Active Substance: CYCLOBENZAPRINE
     Dates: end: 2013
  7. METOPROLOL [Suspect]
     Active Substance: METOPROLOL
     Dates: end: 2013
  8. ESCITALOPRAM [Suspect]
     Active Substance: ESCITALOPRAM OXALATE
     Dates: end: 2013
  9. DICLOFENAC [Suspect]
     Active Substance: DICLOFENAC
     Dates: end: 2013
  10. DOXYCYCLINE. [Suspect]
     Active Substance: DOXYCYCLINE
     Dates: end: 2013
  11. NITROGLYCERIN. [Suspect]
     Active Substance: NITROGLYCERIN
     Dates: end: 2013
  12. IBUPROFEN. [Suspect]
     Active Substance: IBUPROFEN
     Dates: end: 2013
  13. AZITHROMYCIN [Suspect]
     Active Substance: AZITHROMYCIN ANHYDROUS
     Dates: end: 2013

REACTIONS (3)
  - Respiratory arrest [None]
  - Cardiac arrest [None]
  - Poisoning deliberate [None]

NARRATIVE: CASE EVENT DATE: 2013
